FAERS Safety Report 7756599-0 (Version None)
Quarter: 2011Q3

REPORT INFORMATION
  Report Type: 
  Country: None (occurrence: None)
  Receive Date: 20110916
  Receipt Date: 20110907
  Transmission Date: 20111222
  Serious: Yes (Life-Threatening, Hospitalization)
  Sender: FDA-Public Use
  Company Number: PHHO2010US04259

PATIENT
  Sex: Male
  Weight: 130 kg

DRUGS (1)
  1. ALISKIREN [Suspect]
     Indication: CARDIOVASCULAR DISORDER
     Dosage: 300 MG, UNK
     Dates: start: 20100506

REACTIONS (7)
  - DEHYDRATION [None]
  - DYSPNOEA [None]
  - PNEUMONIA [None]
  - PYREXIA [None]
  - CARDIAC ARREST [None]
  - RENAL FAILURE CHRONIC [None]
  - CONFUSIONAL STATE [None]
